FAERS Safety Report 16994927 (Version 2)
Quarter: 2020Q1

REPORT INFORMATION
  Report Type: Report from Study
  Country: PA (occurrence: PA)
  Receive Date: 20191105
  Receipt Date: 20200319
  Transmission Date: 20200409
  Serious: Yes (Other)
  Sender: FDA-Public Use
  Company Number: PHHY2018PA020479

PATIENT
  Age: 26 Year
  Sex: Female

DRUGS (2)
  1. GABAPENTIN. [Suspect]
     Active Substance: GABAPENTIN
     Indication: PRODUCT USED FOR UNKNOWN INDICATION
     Dosage: 1 TAB EVERY NIGHT
     Route: 048
  2. GILENYA [Suspect]
     Active Substance: FINGOLIMOD HYDROCHLORIDE
     Indication: MULTIPLE SCLEROSIS
     Dosage: 0.5 MG, UNK
     Route: 065
     Dates: start: 20180601

REACTIONS (18)
  - Heart rate decreased [Unknown]
  - Blood pressure decreased [Unknown]
  - Paraesthesia [Unknown]
  - Blood thyroid stimulating hormone [Unknown]
  - Malaise [Unknown]
  - Hypoaesthesia [Recovering/Resolving]
  - Limb discomfort [Unknown]
  - Neck injury [Unknown]
  - Movement disorder [Unknown]
  - Anxiety [Unknown]
  - Gait disturbance [Unknown]
  - Thyroxine abnormal [Unknown]
  - Product availability issue [Unknown]
  - Muscular weakness [Recovering/Resolving]
  - Feeling hot [Unknown]
  - Multiple sclerosis relapse [Unknown]
  - Agitation [Unknown]
  - Neck pain [Unknown]

NARRATIVE: CASE EVENT DATE: 20200310
